FAERS Safety Report 17834712 (Version 1)
Quarter: 2020Q2

REPORT INFORMATION
  Report Type: Report from Study
  Country: None (occurrence: US)
  Receive Date: 20200528
  Receipt Date: 20200528
  Transmission Date: 20200714
  Serious: Yes (Other)
  Sender: FDA-Public Use
  Company Number: US-ABBVIE-20K-163-3311735-00

PATIENT
  Sex: Female

DRUGS (2)
  1. HUMIRA [Suspect]
     Active Substance: ADALIMUMAB
     Dosage: CITRATE FREE
     Route: 058
     Dates: start: 2020
  2. HUMIRA [Suspect]
     Active Substance: ADALIMUMAB
     Indication: RHEUMATOID ARTHRITIS
     Dosage: CITRATE FREE
     Route: 058
     Dates: end: 2020

REACTIONS (13)
  - Asthma [Recovering/Resolving]
  - Sleep disorder [Not Recovered/Not Resolved]
  - Arthralgia [Not Recovered/Not Resolved]
  - Chest discomfort [Recovering/Resolving]
  - Rheumatoid arthritis [Unknown]
  - Fatigue [Recovering/Resolving]
  - Memory impairment [Unknown]
  - Tendonitis [Not Recovered/Not Resolved]
  - Nausea [Unknown]
  - Malaise [Recovering/Resolving]
  - Joint dislocation [Not Recovered/Not Resolved]
  - Upper respiratory tract infection [Recovered/Resolved]
  - COVID-19 [Recovering/Resolving]

NARRATIVE: CASE EVENT DATE: 2020
